FAERS Safety Report 10379616 (Version 1)
Quarter: 2014Q3

REPORT INFORMATION
  Report Type: Spontaneous
  Country: US (occurrence: US)
  Receive Date: 20140812
  Receipt Date: 20140812
  Transmission Date: 20150326
  Serious: Yes (Congenital Anomaly, Other)
  Sender: FDA-Public Use
  Company Number: US-ABBVIE-14P-163-1269024-00

PATIENT
  Sex: Male

DRUGS (1)
  1. DEPAKOTE [Suspect]
     Active Substance: DIVALPROEX SODIUM
     Indication: MATERNAL EXPOSURE TIMING UNSPECIFIED
     Route: 064

REACTIONS (20)
  - Foetal exposure during pregnancy [Unknown]
  - Motor developmental delay [Unknown]
  - Emotional distress [Unknown]
  - Autism spectrum disorder [Unknown]
  - Activities of daily living impaired [Unknown]
  - Mental impairment [Unknown]
  - Pain [Unknown]
  - Affective disorder [Unknown]
  - Mental disorder [Unknown]
  - Sensory integrative dysfunction [Unknown]
  - Congenital neurological disorder [Unknown]
  - Abnormal behaviour [Unknown]
  - Disturbance in social behaviour [Unknown]
  - Physical disability [Unknown]
  - Cognitive disorder [Unknown]
  - Asperger^s disorder [Unknown]
  - Attention deficit/hyperactivity disorder [Unknown]
  - Injury [Unknown]
  - Anhedonia [Unknown]
  - Economic problem [Unknown]
